FAERS Safety Report 5888146-2 (Version None)
Quarter: 2008Q3

REPORT INFORMATION
  Report Type: 
  Country: None (occurrence: None)
  Receive Date: 20080916
  Receipt Date: 20080909
  Transmission Date: 20090109
  Serious: Yes (Hospitalization)
  Sender: FDA-Public Use
  Company Number: 2008BI021838

PATIENT
  Age: 43 Year
  Sex: Male

DRUGS (6)
  1. TYSABRI [Suspect]
     Indication: MULTIPLE SCLEROSIS
     Dosage: 300 MG; QM; IV
     Route: 042
     Dates: start: 20070917, end: 20080820
  2. LOVENOX [Concomitant]
  3. WELLBUTRIN [Concomitant]
  4. LISINOPRIL [Concomitant]
  5. AMITRIPTYLINE HCL [Concomitant]
  6. FOSAMAX [Concomitant]

REACTIONS (7)
  - BURNING SENSATION [None]
  - CONFUSIONAL STATE [None]
  - HEADACHE [None]
  - LETHARGY [None]
  - MUSCULAR WEAKNESS [None]
  - SPEECH DISORDER [None]
  - WEIGHT DECREASED [None]
